FAERS Safety Report 8349195-8 (Version None)
Quarter: 2012Q2

REPORT INFORMATION
  Report Type: 
  Country: None (occurrence: None)
  Receive Date: 20120508
  Receipt Date: 20120508
  Transmission Date: 20120825
  Serious: No
  Sender: FDA-Public Use
  Company Number: None

PATIENT
  Sex: Female
  Weight: 58.9676 kg

DRUGS (1)
  1. AMBIEN [Suspect]
     Indication: INSOMNIA
     Dosage: 10MG 1 X A DAY  EVERY DAY

REACTIONS (4)
  - ABNORMAL SLEEP-RELATED EVENT [None]
  - SLEEP TALKING [None]
  - SLEEP-RELATED EATING DISORDER [None]
  - SOMNAMBULISM [None]
